FAERS Safety Report 13682814 (Version 1)
Quarter: 2017Q2

REPORT INFORMATION
  Report Type: Spontaneous
  Country: US (occurrence: US)
  Receive Date: 20170623
  Receipt Date: 20170623
  Transmission Date: 20170830
  Serious: No
  Sender: FDA-Public Use
  Company Number: US-MALLINCKRODT-T201700170

PATIENT
  Age: 61 Year
  Sex: Male

DRUGS (2)
  1. H.P. ACTHAR [Suspect]
     Active Substance: CORTICOTROPIN
     Indication: NEPHROTIC SYNDROME
     Dosage: 80U/1ML 2X/WK
     Route: 058
     Dates: start: 201607, end: 201611
  2. H.P. ACTHAR [Suspect]
     Active Substance: CORTICOTROPIN
     Dosage: 40U/1ML 2X/WK
     Route: 058
     Dates: start: 201607

REACTIONS (1)
  - Nipple pain [Unknown]
